FAERS Safety Report 6277424-3 (Version None)
Quarter: 2009Q3

REPORT INFORMATION
  Report Type: 
  Country: None (occurrence: None)
  Receive Date: 20090722
  Receipt Date: 20090526
  Transmission Date: 20100115
  Serious: No
  Sender: FDA-Public Use
  Company Number: US-BRISTOL-MYERS SQUIBB COMPANY-14636989

PATIENT
  Age: 69 Year
  Sex: Female
  Weight: 79 kg

DRUGS (4)
  1. COUMADIN [Suspect]
     Indication: THROMBOSIS
  2. DEPAKOTE [Concomitant]
  3. AMLODIPINE [Concomitant]
  4. LUMIGAN [Concomitant]

REACTIONS (1)
  - HAIR TEXTURE ABNORMAL [None]
